FAERS Safety Report 6269453-0 (Version None)
Quarter: 2009Q3

REPORT INFORMATION
  Report Type: 
  Country: None (occurrence: None)
  Receive Date: 20090715
  Receipt Date: 20090707
  Transmission Date: 20100115
  Serious: Yes (Other)
  Sender: FDA-Public Use
  Company Number: US-GENENTECH-286483

PATIENT
  Age: 8 Year
  Sex: Female

DRUGS (2)
  1. XOLAIR [Suspect]
     Indication: ASTHMA
     Dosage: 375 MG, Q2W
     Dates: start: 20090311
  2. PREDNISONE TAB [Concomitant]
     Indication: ASPERGILLOSIS

REACTIONS (1)
  - URTICARIA [None]
